FAERS Safety Report 10109153 (Version 1)
Quarter: 2014Q2

REPORT INFORMATION
  Report Type: Spontaneous
  Country: US (occurrence: US)
  Receive Date: 20140425
  Receipt Date: 20140425
  Transmission Date: 20141212
  Serious: Yes (Other)
  Sender: FDA-Public Use
  Company Number: US-AMGEN-USASP2014029212

PATIENT
  Sex: 0

DRUGS (1)
  1. XGEVA [Suspect]
     Indication: PRODUCT USED FOR UNKNOWN INDICATION
     Dosage: UNK UNK, QMO
     Route: 065
     Dates: end: 201301

REACTIONS (2)
  - Malignant neoplasm progression [Unknown]
  - Tooth infection [Unknown]
